FAERS Safety Report 8847988 (Version 2)
Quarter: 2013Q1

REPORT INFORMATION
  Report Type: Spontaneous
  Country: FR (occurrence: FR)
  Receive Date: 20121018
  Receipt Date: 20130109
  Transmission Date: 20140127
  Serious: Yes (Hospitalization)
  Sender: FDA-Public Use
  Company Number: FR-FRI-1000039487

PATIENT
  Age: 44 Year
  Sex: Male

DRUGS (5)
  1. ACAMPROSATE [Suspect]
     Indication: ALCOHOLISM
     Dosage: 1998 MG
     Route: 048
     Dates: start: 201104, end: 20120803
  2. LOXAPAC [Suspect]
     Indication: PSYCHOTIC DISORDER
     Dosage: 15 DF
     Route: 048
     Dates: start: 20120803, end: 20120803
  3. VALIUM [Suspect]
     Indication: PSYCHOTIC DISORDER
     Dosage: 4 DF
     Route: 048
     Dates: start: 20120803
  4. MIRTAZAPINE [Suspect]
     Indication: PSYCHOTIC DISORDER
     Dosage: 2 DF
     Route: 048
     Dates: start: 201204
  5. BEVITINE [Concomitant]
     Indication: VITAMIN B1 DEFICIENCY
     Dates: start: 20120803, end: 20120803

REACTIONS (2)
  - Neutropenia [Recovered/Resolved]
  - Thrombocytopenia [Recovered/Resolved]
